FAERS Safety Report 6811798-7 (Version None)
Quarter: 2010Q2

REPORT INFORMATION
  Report Type: 
  Country: None (occurrence: None)
  Receive Date: 20100628
  Receipt Date: 20100614
  Transmission Date: 20101027
  Serious: Yes (Hospitalization, Other)
  Sender: FDA-Public Use
  Company Number: 2010AP001233

PATIENT
  Age: 78 Year
  Sex: Male

DRUGS (13)
  1. ALENDRONATE SODIUM [Suspect]
     Indication: OSTEOPOROSIS PROPHYLAXIS
     Dosage: 70 MG; PO
     Route: 048
  2. COLECALCIFEROL (COLECALCIFEROL) [Concomitant]
  3. CALCIUM CARBONATE [Concomitant]
  4. CYCLOPHOSPHAMIDE [Concomitant]
  5. LANSOPRAZOLE [Concomitant]
  6. PREDNISOLONE [Concomitant]
  7. SALBUTAMOL (SALBUTAMOL) [Concomitant]
  8. SALMETEROL XINAFOATE (SALMETEROL XINAFOATE) [Concomitant]
  9. FLUTICASONE PROPIONATE [Concomitant]
  10. TIOTROPIUM BROMIDE (TIOTROPIUM BROMIDE) [Concomitant]
  11. URSODIOL [Concomitant]
  12. AMOXICILLIN [Concomitant]
  13. OSELTAMIVIR PHOSPHATE [Concomitant]

REACTIONS (5)
  - ATRIAL FIBRILLATION [None]
  - CHEST PAIN [None]
  - HAEMOGLOBIN DECREASED [None]
  - HEART RATE IRREGULAR [None]
  - LOWER RESPIRATORY TRACT INFECTION [None]
